FAERS Safety Report 6474076-4 (Version None)
Quarter: 2009Q4

REPORT INFORMATION
  Report Type: 
  Country: None (occurrence: None)
  Receive Date: 20091204
  Receipt Date: 20091124
  Transmission Date: 20100525
  Serious: Yes (Other)
  Sender: FDA-Public Use
  Company Number: SE-JNJFOC-20091101065

PATIENT
  Sex: Male

DRUGS (15)
  1. INTELENCE [Suspect]
     Indication: HIV INFECTION
     Route: 048
  2. PREZISTA [Concomitant]
     Indication: HIV INFECTION
     Route: 048
  3. NORVIR [Concomitant]
     Indication: HIV INFECTION
  4. ISENTRESS [Concomitant]
     Indication: HIV INFECTION
  5. VALACYCLOVIR [Concomitant]
     Indication: HERPES VIRUS INFECTION
  6. ESOMEPRAZOLE MAGNESIUM [Concomitant]
  7. IMOVANE [Concomitant]
  8. NORVASC [Concomitant]
  9. ENALAPRIL [Concomitant]
  10. ZINC [Concomitant]
  11. EMGESAN [Concomitant]
  12. TOCOPHEROL CONCENTRATE CAP [Concomitant]
  13. C-VIMIN [Concomitant]
  14. SYMBICORT [Concomitant]
     Route: 055
  15. ALVEDON [Concomitant]

REACTIONS (4)
  - ARTHRALGIA [None]
  - ERYTHEMA MULTIFORME [None]
  - OROPHARYNGEAL PAIN [None]
  - SENSORY DISTURBANCE [None]
